FAERS Safety Report 7546116-2 (Version None)
Quarter: 2011Q2

REPORT INFORMATION
  Report Type: 
  Country: None (occurrence: None)
  Receive Date: 20110614
  Receipt Date: 20040202
  Transmission Date: 20111010
  Serious: Yes (Life-Threatening, Hospitalization)
  Sender: FDA-Public Use
  Company Number: PHHO2004CA01759

PATIENT
  Sex: Male

DRUGS (2)
  1. CLOZAPINE [Suspect]
     Dosage: 560 MG, QD
  2. LIPITOR [Interacting]

REACTIONS (8)
  - SEDATION [None]
  - BLOOD CREATINE PHOSPHOKINASE INCREASED [None]
  - MUSCULOSKELETAL STIFFNESS [None]
  - MYALGIA [None]
  - ASTHENIA [None]
  - DRUG INTERACTION [None]
  - RHABDOMYOLYSIS [None]
  - LETHARGY [None]
